FAERS Safety Report 9341605 (Version 2)
Quarter: 2013Q3

REPORT INFORMATION
  Report Type: Spontaneous
  Country: CA (occurrence: CA)
  Receive Date: 20130611
  Receipt Date: 20130731
  Transmission Date: 20140515
  Serious: Yes (Hospitalization)
  Sender: FDA-Public Use
  Company Number: CA-EISAI INC-E2020-12261-SPO-CA

PATIENT
  Sex: Male

DRUGS (6)
  1. DONEPEZIL [Suspect]
     Indication: DEMENTIA ALZHEIMER^S TYPE
     Route: 048
     Dates: start: 200005, end: 2001
  2. DONEPEZIL [Suspect]
     Route: 048
     Dates: start: 2001, end: 20020407
  3. ANUSOL [Concomitant]
     Dosage: 2 EVERY DAY
  4. CELEXA [Concomitant]
     Dosage: 20 MG DAILY
     Dates: start: 200108
  5. SYNTHROID [Concomitant]
     Dosage: 0.025 MG DAILY
     Dates: start: 200104
  6. XANAX [Concomitant]
     Dosage: 0.25 MG DAILY
     Dates: start: 20020312

REACTIONS (2)
  - Torsade de pointes [Recovered/Resolved]
  - Atrioventricular block complete [Recovered/Resolved]
